FAERS Safety Report 24881123 (Version 1)
Quarter: 2025Q1

REPORT INFORMATION
  Report Type: Spontaneous
  Country: US (occurrence: None)
  Receive Date: 20250124
  Receipt Date: 20250124
  Transmission Date: 20250409
  Serious: No
  Sender: SOLSTICE NEUROSCIENCES, LLC
  Company Number: US-Solstice Neurosciences, LLC-SOL202409-003570

PATIENT
  Age: 83 Year
  Sex: Male

DRUGS (21)
  1. MYOBLOC [Suspect]
     Active Substance: RIMABOTULINUMTOXINB
     Indication: Salivary hypersecretion
     Dosage: 1250 UNITS ON EACH SIDE, PAROTID LEFT AND PAROTID RIGHT (A TOTAL OF 2500 UNITS EACH TIME)
     Dates: start: 20240305
  2. MYOBLOC [Suspect]
     Active Substance: RIMABOTULINUMTOXINB
     Indication: Drooling
  3. HYGROTON [Concomitant]
     Active Substance: CHLORTHALIDONE
  4. CELEBREX [Concomitant]
     Active Substance: CELECOXIB
  5. MOTRIN [Concomitant]
     Active Substance: IBUPROFEN
  6. COLACE [Concomitant]
     Active Substance: DOCUSATE SODIUM
  7. EPIPEN [Concomitant]
     Active Substance: EPINEPHRINE
  8. TRAMADOL HYDROCHLORIDE [Concomitant]
     Active Substance: TRAMADOL HYDROCHLORIDE
  9. HYDROCORTISONE [Concomitant]
     Active Substance: HYDROCORTISONE
  10. SINEMET [Concomitant]
     Active Substance: CARBIDOPA\LEVODOPA
  11. NIZER [Concomitant]
  12. LOSARTAN [Concomitant]
     Active Substance: LOSARTAN
  13. PIZOTYLINE [Concomitant]
     Active Substance: PIZOTYLINE
  14. INDERAL [Concomitant]
     Active Substance: PROPRANOLOL HYDROCHLORIDE
  15. SYMFAXIN [Concomitant]
  16. VIAGRA [Concomitant]
     Active Substance: SILDENAFIL CITRATE
  17. FLOMAX [Concomitant]
     Active Substance: TAMSULOSIN HYDROCHLORIDE
  18. GEMTESA [Concomitant]
     Active Substance: VIBEGRON
  19. SELEGILINE [Concomitant]
     Active Substance: SELEGILINE
  20. PROPRANOLOL [Concomitant]
     Active Substance: PROPRANOLOL HYDROCHLORIDE
  21. OSCAR [Concomitant]

REACTIONS (1)
  - Dysphagia [Unknown]

NARRATIVE: CASE EVENT DATE: 20240920
